FAERS Safety Report 8506513-5 (Version None)
Quarter: 2012Q3

REPORT INFORMATION
  Report Type: 
  Country: None (occurrence: None)
  Receive Date: 20120712
  Receipt Date: 20120330
  Transmission Date: 20120928
  Serious: No
  Sender: FDA-Public Use
  Company Number: US-GLAXOSMITHKLINE-A0945620A

PATIENT
  Age: 88 Year
  Sex: Male

DRUGS (6)
  1. TRICOR [Concomitant]
  2. PRILOSEC [Concomitant]
  3. JALYN [Suspect]
     Indication: BENIGN PROSTATIC HYPERPLASIA
     Dosage: 1CAP PER DAY
     Route: 048
     Dates: start: 20110915
  4. NEURONTIN [Concomitant]
  5. PINDOLOL [Concomitant]
  6. NORVASC [Concomitant]

REACTIONS (4)
  - DIZZINESS [None]
  - DRUG ADMINISTRATION ERROR [None]
  - DYSPEPSIA [None]
  - URINE FLOW DECREASED [None]
